FAERS Safety Report 9950787 (Version 2)
Quarter: 2014Q1

REPORT INFORMATION
  Report Type: Report from Study
  Country: PR (occurrence: PR)
  Receive Date: 20140304
  Receipt Date: 20140304
  Transmission Date: 20141002
  Serious: No
  Sender: FDA-Public Use
  Company Number: PR-ABBVIE-12P-131-0914001-00

PATIENT
  Age: 28 Year
  Sex: Female
  Weight: 78.09 kg

DRUGS (2)
  1. HUMIRA 40 MG/0.8 ML PEN [Suspect]
     Indication: RHEUMATOID ARTHRITIS
     Route: 058
     Dates: start: 2010
  2. RELAFEN [Concomitant]
     Indication: PAIN
     Route: 048
     Dates: start: 2010

REACTIONS (2)
  - Heart rate increased [Recovered/Resolved]
  - Palpitations [Recovered/Resolved]
